FAERS Safety Report 8765263 (Version 2)
Quarter: 2012Q4

REPORT INFORMATION
  Report Type: Report from Study
  Country: PL (occurrence: PL)
  Receive Date: 20120831
  Receipt Date: 20120926
  Transmission Date: 20130627
  Serious: Yes (Hospitalization)
  Sender: FDA-Public Use
  Company Number: PL-GILEAD-2012-0060086

PATIENT
  Age: 78 Year
  Sex: Female

DRUGS (7)
  1. RANOLAZINE [Suspect]
     Indication: ANGINA PECTORIS
     Dosage: 1000 mg, BID
     Route: 048
     Dates: start: 20120801, end: 20120820
  2. ASPIRIN [Concomitant]
     Indication: ANGINA UNSTABLE
     Dosage: UNK
     Dates: start: 20120723
  3. CLOPIDOGREL [Concomitant]
     Indication: ANGINA UNSTABLE
     Dosage: UNK
     Dates: start: 20120723
  4. PANTOPRAZOLE [Concomitant]
     Indication: PROPHYLAXIS
     Dosage: UNK
     Dates: start: 20120723
  5. ROSUVASTATIN [Concomitant]
     Indication: HYPERLIPIDAEMIA
     Dosage: UNK
     Dates: start: 20120723, end: 20120820
  6. INDAPAMIDE [Concomitant]
     Indication: HYPERTENSION
     Dosage: UNK
     Dates: start: 20120723
  7. PIRACETAM [Concomitant]
     Indication: CEREBROVASCULAR ACCIDENT
     Dosage: UNK
     Dates: start: 20110727

REACTIONS (2)
  - Rhabdomyolysis [Recovered/Resolved]
  - Angina pectoris [Recovered/Resolved]
